FAERS Safety Report 9134623 (Version 2)
Quarter: 2013Q1

REPORT INFORMATION
  Report Type: Report from Study
  Country: NZ (occurrence: NZ)
  Receive Date: 20130304
  Receipt Date: 20130325
  Transmission Date: 20140127
  Serious: Yes (Death, Hospitalization, Other)
  Sender: FDA-Public Use
  Company Number: PHHY2013NZ020096

PATIENT
  Age: 59 None
  Sex: Male

DRUGS (3)
  1. CLOZARIL [Suspect]
     Indication: SCHIZOPHRENIA
     Dosage: 150 MG DAILY
     Route: 048
     Dates: start: 20121218, end: 20121226
  2. CLOZARIL [Suspect]
     Dosage: 150 MG DAILY
     Route: 048
     Dates: end: 20130121
  3. SODIUM VALPROATE [Concomitant]
     Dosage: 500 MG, QD
     Route: 048
     Dates: start: 20121224, end: 20130128

REACTIONS (22)
  - Completed suicide [Fatal]
  - Diverticulum [Unknown]
  - Bowel movement irregularity [Unknown]
  - Faecal incontinence [Unknown]
  - Chills [Unknown]
  - Labile blood pressure [Unknown]
  - Liver function test abnormal [Unknown]
  - Urinary incontinence [Unknown]
  - Headache [Unknown]
  - Hypotension [Unknown]
  - Pyrexia [Recovered/Resolved]
  - Large intestine polyp [Unknown]
  - Lymphadenopathy [Unknown]
  - Cold sweat [Unknown]
  - Pleural effusion [Unknown]
  - Dyspnoea [Unknown]
  - Cough [Unknown]
  - Anaemia [Unknown]
  - Somnolence [Unknown]
  - White blood cell count decreased [Unknown]
  - Diarrhoea [Unknown]
  - Neutrophilia [Unknown]
